FAERS Safety Report 8075322-6 (Version None)
Quarter: 2012Q1

REPORT INFORMATION
  Report Type: 
  Country: None (occurrence: None)
  Receive Date: 20120127
  Receipt Date: 20120118
  Transmission Date: 20120608
  Serious: Yes (Other)
  Sender: FDA-Public Use
  Company Number: US-JNJFOC-20120108305

PATIENT

DRUGS (3)
  1. METHOTREXATE [Concomitant]
     Route: 065
  2. INFLIXIMAB, RECOMBINANT [Suspect]
     Indication: PAROPHTHALMIA
     Dosage: 3-5 MG/KG
     Route: 042
  3. PREDNISONE TAB [Concomitant]
     Route: 065

REACTIONS (1)
  - LUPUS-LIKE SYNDROME [None]
